FAERS Safety Report 17573047 (Version 1)
Quarter: 2020Q1

REPORT INFORMATION
  Report Type: Spontaneous
  Country: US (occurrence: US)
  Receive Date: 20200317
  Receipt Date: 20200317
  Transmission Date: 20200409
  Serious: Yes (Death, Hospitalization)
  Sender: FDA-Public Use
  Company Number: None

PATIENT
  Age: 56 Year
  Sex: Female
  Weight: 116.8 kg

DRUGS (3)
  1. PACLITAXEL PROTEIN-BOUND PARTICLES (ALBUMIN-BOUND) [Suspect]
     Active Substance: PACLITAXEL
     Dates: end: 20200219
  2. CISPLATIN. [Suspect]
     Active Substance: CISPLATIN
     Dates: end: 20200219
  3. GEMCITABINE HYDROCHLORIDE. [Suspect]
     Active Substance: GEMCITABINE HYDROCHLORIDE
     Dates: end: 20200219

REACTIONS (8)
  - Abdominal pain [None]
  - Diarrhoea [None]
  - Leukopenia [None]
  - Acute kidney injury [None]
  - Respiratory failure [None]
  - Septic shock [None]
  - Lactic acidosis [None]
  - Neutropenic colitis [None]

NARRATIVE: CASE EVENT DATE: 20200306
